FAERS Safety Report 24298626 (Version 2)
Quarter: 2024Q3

REPORT INFORMATION
  Report Type: Spontaneous
  Country: CO (occurrence: CO)
  Receive Date: 20240909
  Receipt Date: 20240910
  Transmission Date: 20241017
  Serious: Yes (Hospitalization, Other)
  Sender: HRA PHARMA
  Company Number: CO-ORG100014127-2024000244

PATIENT
  Age: 33 Year
  Sex: Male
  Weight: 72 kg

DRUGS (4)
  1. LYSODREN [Suspect]
     Active Substance: MITOTANE
     Indication: Adrenocortical carcinoma
     Dosage: 3500 MG EVERY 8 HOURS
     Route: 048
     Dates: start: 20230303
  2. HYDROCORTISONE [Concomitant]
     Active Substance: HYDROCORTISONE\HYDROCORTISONE ACETATE
     Indication: Product used for unknown indication
     Dosage: 20 MG EVERY 12 HOURS, THEN DISCONTINUED FOR 15 DAYS DUE TO NON-DISPENSATION
     Dates: start: 202403, end: 202407
  3. HYDROCORTISONE [Concomitant]
     Active Substance: HYDROCORTISONE\HYDROCORTISONE ACETATE
     Indication: Product used for unknown indication
     Dates: start: 2024
  4. Dolutegravir + Lamivudine 50/300 mg [Concomitant]
     Indication: Product used for unknown indication
     Dosage: MORE THAN 4 YEARS OF THERAPY

REACTIONS (12)
  - Syncope [Unknown]
  - Renal impairment [Unknown]
  - Hyponatraemia [Unknown]
  - Chest pain [Unknown]
  - Weight decreased [Unknown]
  - Decreased appetite [Unknown]
  - Vomiting [Unknown]
  - Adrenocortical insufficiency acute [Unknown]
  - Hiccups [Unknown]
  - Abdominal pain upper [Unknown]
  - Dizziness [Unknown]
  - Nausea [Unknown]

NARRATIVE: CASE EVENT DATE: 20240101
